FAERS Safety Report 15111068 (Version 2)
Quarter: 2018Q3

REPORT INFORMATION
  Report Type: Spontaneous
  Country: FR (occurrence: FR)
  Receive Date: 20180705
  Receipt Date: 20180813
  Transmission Date: 20181010
  Serious: Yes (Hospitalization)
  Sender: FDA-Public Use
  Company Number: FR-JNJFOC-20180639812

PATIENT
  Age: 58 Year
  Sex: Female

DRUGS (1)
  1. SIMPONI [Suspect]
     Active Substance: GOLIMUMAB
     Indication: RHEUMATOID ARTHRITIS
     Dosage: 1 INJECTION PER MONTH
     Route: 058
     Dates: start: 201801

REACTIONS (7)
  - White blood cell count increased [Unknown]
  - Weight decreased [Unknown]
  - Enterocolitis haemorrhagic [Unknown]
  - Gingival bleeding [Unknown]
  - Onychoclasis [Unknown]
  - Drug ineffective [Unknown]
  - Asthenia [Unknown]

NARRATIVE: CASE EVENT DATE: 201801
